FAERS Safety Report 9948389 (Version 1)
Quarter: 2014Q1

REPORT INFORMATION
  Report Type: Report from Study
  Country: US (occurrence: US)
  Receive Date: 20140303
  Receipt Date: 20140303
  Transmission Date: 20141002
  Serious: No
  Sender: FDA-Public Use
  Company Number: US-ABBVIE-13P-163-1058189-00

PATIENT
  Age: 49 Year
  Sex: Female

DRUGS (8)
  1. HUMIRA [Suspect]
     Indication: CROHN^S DISEASE
     Dosage: LOADING DOSE
     Dates: start: 20130301
  2. WELLBUTRIN [Concomitant]
     Indication: ANXIETY
  3. BLOOD PRESSURE MEDICINE [Concomitant]
     Indication: PRODUCT USED FOR UNKNOWN INDICATION
  4. BENTYL [Concomitant]
     Indication: BLOOD PRESSURE
  5. VITAMIN D [Concomitant]
     Indication: NUTRITIONAL SUPPLEMENTATION
  6. CALCIUM [Concomitant]
     Indication: NUTRITIONAL SUPPLEMENTATION
  7. VITAMIN C [Concomitant]
     Indication: NUTRITIONAL SUPPLEMENTATION
  8. VITAMIN B-12 [Concomitant]
     Indication: NUTRITIONAL SUPPLEMENTATION

REACTIONS (1)
  - Injection site pain [Recovered/Resolved]
